FAERS Safety Report 10038172 (Version 1)
Quarter: 2014Q1

REPORT INFORMATION
  Report Type: Spontaneous
  Country: US (occurrence: None)
  Receive Date: 20140325
  Receipt Date: 20140325
  Transmission Date: 20141002
  Serious: Yes (Other)
  Sender: FDA-Public Use
  Company Number: None

PATIENT
  Age: 46 Year
  Sex: Female
  Weight: 102.06 kg

DRUGS (1)
  1. PAROXETINE [Suspect]
     Indication: MAJOR DEPRESSION
     Dates: start: 201108

REACTIONS (3)
  - Gastrointestinal disorder [None]
  - Insomnia [None]
  - Product substitution issue [None]
